FAERS Safety Report 17665954 (Version 2)
Quarter: 2020Q2

REPORT INFORMATION
  Report Type: Spontaneous
  Country: US (occurrence: US)
  Receive Date: 20200414
  Receipt Date: 20200514
  Transmission Date: 20200713
  Serious: No
  Sender: FDA-Public Use
  Company Number: US-KARYOPHARM-2020KPT000249

PATIENT

DRUGS (3)
  1. DEXAMETHASONE. [Concomitant]
     Active Substance: DEXAMETHASONE
     Indication: PRODUCT USED FOR UNKNOWN INDICATION
  2. XPOVIO [Suspect]
     Active Substance: SELINEXOR
     Indication: PLASMA CELL MYELOMA
     Dosage: 80 MG, 2X/WEEK
     Route: 048
     Dates: start: 20200302
  3. XPOVIO [Suspect]
     Active Substance: SELINEXOR
     Dosage: 100 MG, WEEKLY
     Dates: end: 20200406

REACTIONS (11)
  - Diarrhoea [Recovering/Resolving]
  - Hypercreatinaemia [Unknown]
  - Nausea [Recovering/Resolving]
  - Dizziness [Unknown]
  - Hypokalaemia [Unknown]
  - Therapeutic product effect decreased [Unknown]
  - Ear congestion [Unknown]
  - Thrombocytopenia [Not Recovered/Not Resolved]
  - Irritability [Unknown]
  - Hyponatraemia [Unknown]
  - Decreased appetite [Recovering/Resolving]

NARRATIVE: CASE EVENT DATE: 202003
